FAERS Safety Report 17772947 (Version 16)
Quarter: 2020Q3

REPORT INFORMATION
  Report Type: Report from Study
  Country: CA (occurrence: CA)
  Receive Date: 20200512
  Receipt Date: 20200930
  Transmission Date: 20201102
  Serious: Yes (Hospitalization)
  Sender: FDA-Public Use
  Company Number: CA-EISAI MEDICAL RESEARCH-EC-2020-074540

PATIENT
  Age: 59 Year
  Sex: Female
  Weight: 45.9 kg

DRUGS (7)
  1. LENVATINIB [Suspect]
     Active Substance: LENVATINIB
     Indication: NON-SMALL CELL LUNG CANCER
     Route: 048
     Dates: start: 20200428
  2. ZOPICLONE [Concomitant]
     Active Substance: ZOPICLONE
     Dates: start: 20200103
  3. INNOHEP [Suspect]
     Active Substance: TINZAPARIN SODIUM
     Indication: DEEP VEIN THROMBOSIS
     Route: 058
     Dates: start: 20200229, end: 20200528
  4. PEMBROLIZUMAB. [Suspect]
     Active Substance: PEMBROLIZUMAB
     Indication: NON-SMALL CELL LUNG CANCER
     Route: 041
     Dates: start: 20200428, end: 20200428
  5. TRAMACET [Concomitant]
     Active Substance: ACETAMINOPHEN\TRAMADOL
     Dates: start: 20200103
  6. PEMBROLIZUMAB. [Suspect]
     Active Substance: PEMBROLIZUMAB
     Route: 041
     Dates: start: 20200130
  7. VANCOMYCIN [Suspect]
     Active Substance: VANCOMYCIN
     Indication: WOUND INFECTION
     Route: 042
     Dates: start: 20200504, end: 20200519

REACTIONS (4)
  - Orthostatic hypotension [Recovered/Resolved]
  - Red man syndrome [Recovered/Resolved]
  - Abdominal wall haematoma [Recovered/Resolved]
  - Wound infection [Recovered/Resolved]

NARRATIVE: CASE EVENT DATE: 20200501
